FAERS Safety Report 12978864 (Version 1)
Quarter: 2016Q4

REPORT INFORMATION
  Report Type: Spontaneous
  Country: AU (occurrence: US)
  Receive Date: 20161128
  Receipt Date: 20161128
  Transmission Date: 20170207
  Serious: Yes (Other)
  Sender: FDA-Public Use
  Company Number: AU-BAYER-2016-222114

PATIENT
  Age: 35 Year
  Sex: Female

DRUGS (4)
  1. ACETYLSALICYLIC ACID({=100 MG) [Suspect]
     Active Substance: ASPIRIN
     Dosage: 81 MG, QD
     Dates: start: 2001
  2. HEPARIN [Concomitant]
     Active Substance: HEPARIN SODIUM
     Dosage: 7500 U, BID, AT 12 WEEKS GESTATION
     Route: 058
  3. HEPARIN [Concomitant]
     Active Substance: HEPARIN SODIUM
     Dosage: 15000 U, BID, AT 19 WEEKS GESTATION
     Route: 058
  4. HEPARIN [Concomitant]
     Active Substance: HEPARIN SODIUM
     Dosage: 5000 U, BID, STARTING IN THE LUTEAL PHASE
     Route: 058
     Dates: start: 2001

REACTIONS (2)
  - Maternal exposure during pregnancy [None]
  - Blighted ovum [None]
